FAERS Safety Report 17395472 (Version 8)
Quarter: 2021Q1

REPORT INFORMATION
  Report Type: Other
  Country: KR (occurrence: KR)
  Receive Date: 20200210
  Receipt Date: 20210310
  Transmission Date: 20210419
  Serious: Yes (Hospitalization)
  Sender: FDA-Public Use
  Company Number: KR-ROCHE-2539027

PATIENT
  Age: 58 Year
  Sex: Female

DRUGS (38)
  1. PERTUZUMAB. [Suspect]
     Active Substance: PERTUZUMAB
     Indication: BREAST CANCER
     Route: 065
     Dates: start: 20191231
  2. CLOPIDOGREL BISULPHATE [Concomitant]
     Active Substance: CLOPIDOGREL BISULFATE
     Indication: HYPERTENSION
     Route: 048
     Dates: start: 2012
  3. DEXAMETHASONE. [Concomitant]
     Active Substance: DEXAMETHASONE
     Dosage: 8*BID*2 DAY
     Route: 048
     Dates: start: 20200101, end: 20200422
  4. GLUCOPHAGE [Concomitant]
     Active Substance: METFORMIN HYDROCHLORIDE
     Indication: DIABETES MELLITUS
     Route: 048
     Dates: start: 20200129
  5. AMARYL [Concomitant]
     Active Substance: GLIMEPIRIDE
     Indication: DIABETES MELLITUS
     Route: 048
     Dates: start: 20200201, end: 20200201
  6. LANSTON [Concomitant]
     Active Substance: LANSOPRAZOLE
     Route: 048
     Dates: start: 20191231, end: 20200422
  7. ALMAGEL?F [Concomitant]
     Route: 048
     Dates: start: 20200409, end: 20200411
  8. PERTUZUMAB. [Suspect]
     Active Substance: PERTUZUMAB
     Route: 065
     Dates: start: 20200129
  9. PERTUZUMAB. [Suspect]
     Active Substance: PERTUZUMAB
     Route: 065
     Dates: start: 20200311
  10. LIPIDIL SUPRA [Concomitant]
     Active Substance: FENOFIBRATE
     Indication: HYPERTENSION
     Route: 048
  11. LEVOTENSION [Concomitant]
     Indication: HYPERTENSION
     Route: 048
     Dates: start: 2012
  12. TRAJENTA [Concomitant]
     Active Substance: LINAGLIPTIN
     Indication: DIABETES MELLITUS
     Dosage: 2.5/500MG
     Route: 048
     Dates: start: 2014
  13. CRAVIT [Concomitant]
     Active Substance: LEVOFLOXACIN
     Indication: URINARY TRACT INFECTION
     Route: 048
     Dates: start: 20200312, end: 20200318
  14. TARGIN [Concomitant]
     Active Substance: NALOXONE HYDROCHLORIDE\OXYCODONE HYDROCHLORIDE
     Dosage: 5/2.5 MG
     Route: 048
     Dates: start: 20200402, end: 20200407
  15. HUMALOG [Concomitant]
     Active Substance: INSULIN LISPRO
     Dosage: 4 OTHER (UNIT)
     Route: 058
     Dates: start: 20200130, end: 20200130
  16. ALOXI [Concomitant]
     Active Substance: PALONOSETRON HYDROCHLORIDE
     Route: 042
     Dates: start: 20191231, end: 20200422
  17. CYMBALTA [Concomitant]
     Active Substance: DULOXETINE HYDROCHLORIDE
     Route: 048
     Dates: start: 20200402
  18. DICODE [Concomitant]
     Indication: PAIN
     Route: 048
     Dates: start: 20200108, end: 20200116
  19. TRASTUZUMAB. [Suspect]
     Active Substance: TRASTUZUMAB
     Indication: BREAST CANCER
     Route: 042
     Dates: start: 20191231
  20. NEULASTA [Concomitant]
     Active Substance: PEGFILGRASTIM
     Route: 058
     Dates: start: 20200101, end: 20200422
  21. ROSUVAMIBE [Concomitant]
     Active Substance: EZETIMIBE\ROSUVASTATIN
     Indication: HYPERTENSION
     Dosage: 10/20 MG
     Route: 048
     Dates: start: 2012
  22. HUMALOG [Concomitant]
     Active Substance: INSULIN LISPRO
     Indication: DIABETES MELLITUS
     Dosage: 6 OTHER
     Route: 058
     Dates: start: 20200129, end: 20200129
  23. STILNOX CR [Concomitant]
     Active Substance: ZOLPIDEM TARTRATE
     Route: 048
     Dates: start: 20200131, end: 20200421
  24. PERTUZUMAB. [Suspect]
     Active Substance: PERTUZUMAB
     Route: 065
     Dates: start: 20200401
  25. PERTUZUMAB. [Suspect]
     Active Substance: PERTUZUMAB
     Route: 065
     Dates: start: 20200422
  26. DOCETAXEL. [Suspect]
     Active Substance: DOCETAXEL
     Indication: BREAST CANCER
     Dosage: LAST DOSE OF DOCETAXEL: 22/APR/2020,
     Route: 042
     Dates: start: 20191231
  27. GASTER (SOUTH KOREA) [Concomitant]
     Route: 042
     Dates: start: 20200428, end: 20200428
  28. ONSERAN [Concomitant]
     Route: 048
     Dates: start: 20200410, end: 20200418
  29. PERTUZUMAB. [Suspect]
     Active Substance: PERTUZUMAB
     Route: 065
     Dates: start: 20200219
  30. CONCOR [Concomitant]
     Active Substance: BISOPROLOL FUMARATE
     Indication: HYPERTENSION
     Route: 048
     Dates: start: 2012
  31. EMEND [Concomitant]
     Active Substance: APREPITANT
     Route: 048
     Dates: start: 20191231, end: 20200422
  32. DEXAMETHASONE. [Concomitant]
     Active Substance: DEXAMETHASONE
     Route: 042
     Dates: start: 20191231, end: 20200422
  33. SUSPEN ER [Concomitant]
     Route: 048
     Dates: start: 20191231, end: 20200422
  34. TRAJENTA DUO [Concomitant]
     Active Substance: LINAGLIPTIN\METFORMIN HYDROCHLORIDE
     Indication: DIABETES MELLITUS
     Dosage: 2.5/500
     Route: 048
     Dates: start: 2014
  35. HERZUMA [Suspect]
     Active Substance: TRASTUZUMAB-PKRB
     Indication: BREAST CANCER
     Route: 041
     Dates: start: 20200129
  36. CARBOPLATIN. [Concomitant]
     Active Substance: CARBOPLATIN
     Indication: BREAST CANCER
     Route: 042
     Dates: start: 20191231
  37. GASTER (SOUTH KOREA) [Concomitant]
     Route: 042
     Dates: start: 20191231, end: 20200422
  38. MECOOL [Concomitant]
     Route: 042
     Dates: start: 20191231, end: 20200422

REACTIONS (7)
  - Urinary tract infection [Recovering/Resolving]
  - Upper respiratory tract infection [Recovered/Resolved]
  - Pain in extremity [Recovered/Resolved]
  - Gastroenteritis [Recovered/Resolved]
  - Asthenia [Recovering/Resolving]
  - Asthenia [Recovered/Resolved]
  - Gastroenteritis [Recovered/Resolved]

NARRATIVE: CASE EVENT DATE: 20200104
